FAERS Safety Report 20497536 (Version 1)
Quarter: 2022Q1

REPORT INFORMATION
  Report Type: Report from Study
  Country: US (occurrence: US)
  Receive Date: 20220221
  Receipt Date: 20220221
  Transmission Date: 20220423
  Serious: Yes (Hospitalization, Other)
  Sender: FDA-Public Use
  Company Number: US-ABBVIE-22K-163-4285932-00

PATIENT
  Age: 66 Year
  Sex: Female

DRUGS (1)
  1. IMBRUVICA [Suspect]
     Active Substance: IBRUTINIB
     Indication: Chronic lymphocytic leukaemia
     Route: 048
     Dates: start: 20180503

REACTIONS (4)
  - Coronary arterial stent insertion [Unknown]
  - Stent placement [Unknown]
  - Dyspepsia [Unknown]
  - Obstruction [Unknown]

NARRATIVE: CASE EVENT DATE: 20220201
